FAERS Safety Report 5335931-1 (Version None)
Quarter: 2007Q2

REPORT INFORMATION
  Report Type: 
  Country: None (occurrence: None)
  Receive Date: 20070301
  Receipt Date: 20061128
  Transmission Date: 20071010
  Serious: Yes (Hospitalization, Other)
  Sender: FDA-Public Use
  Company Number: US200605002579

PATIENT
  Age: 61 Year
  Sex: Male
  Weight: 95.2 kg

DRUGS (5)
  1. ZYPREXA [Suspect]
     Dosage: SEE IMAGE
     Dates: start: 19980401
  2. SYMBYAX [Suspect]
     Dates: start: 20051201
  3. PAROXETINE [Concomitant]
  4. TRAZODONE HCL [Concomitant]
  5. METOPROLOL SUCCINATE [Concomitant]

REACTIONS (2)
  - DIABETES MELLITUS [None]
  - PANCREATITIS [None]
